FAERS Safety Report 6108455-1 (Version None)
Quarter: 2009Q1

REPORT INFORMATION
  Report Type: 
  Country: None (occurrence: None)
  Receive Date: 20090309
  Receipt Date: 20090305
  Transmission Date: 20090719
  Serious: No
  Sender: FDA-Public Use
  Company Number: US-B.I. PHARMACEUTICALS,INC./RIDGEFIELD-2009-BP-02640BP

PATIENT
  Age: 53 Year
  Sex: Male

DRUGS (6)
  1. FLOMAX [Suspect]
     Indication: BENIGN PROSTATIC HYPERPLASIA
     Dosage: .4MG
     Dates: start: 20090201
  2. CLONIDINE [Suspect]
     Indication: BLOOD PRESSURE INCREASED
  3. LOPRESSOR [Concomitant]
     Indication: BLOOD PRESSURE INCREASED
  4. LAPRAZOLE [Concomitant]
     Indication: REFLUX OESOPHAGITIS
  5. LORENOX [Concomitant]
     Indication: THROMBOSIS PROPHYLAXIS
  6. ASPIRIN [Concomitant]
     Indication: THROMBOSIS PROPHYLAXIS

REACTIONS (2)
  - INCORRECT ROUTE OF DRUG ADMINISTRATION [None]
  - URINE OUTPUT DECREASED [None]
